FAERS Safety Report 8090246-6 (Version None)
Quarter: 2012Q1

REPORT INFORMATION
  Report Type: 
  Country: None (occurrence: None)
  Receive Date: 20120129
  Receipt Date: 20111107
  Transmission Date: 20120608
  Serious: No
  Sender: FDA-Public Use
  Company Number: US-ABBOTT-11P-163-0872430-00

PATIENT
  Age: 30 Year
  Sex: Female

DRUGS (4)
  1. HUMIRA [Suspect]
     Dates: start: 20111025, end: 20111025
  2. HUMIRA [Suspect]
     Indication: CROHN'S DISEASE
     Dates: start: 20111024, end: 20111024
  3. HUMIRA [Suspect]
     Dates: start: 20111107, end: 20111107
  4. HUMIRA [Suspect]

REACTIONS (3)
  - FATIGUE [None]
  - NAUSEA [None]
  - VOMITING [None]
